FAERS Safety Report 15178228 (Version 1)
Quarter: 2018Q3

REPORT INFORMATION
  Report Type: Spontaneous
  Country: US (occurrence: US)
  Receive Date: 20180721
  Receipt Date: 20180721
  Transmission Date: 20181010
  Serious: Yes (Hospitalization)
  Sender: FDA-Public Use
  Company Number: US-JNJFOC-20180710815

PATIENT
  Sex: Male
  Weight: 112 kg

DRUGS (11)
  1. IMBRUVICA [Suspect]
     Active Substance: IBRUTINIB
     Indication: HAIRY CELL LEUKAEMIA
     Route: 048
     Dates: start: 2018
  2. AMLODIPINE [Concomitant]
     Active Substance: AMLODIPINE BESYLATE
  3. ROSUVASTATIN. [Concomitant]
     Active Substance: ROSUVASTATIN
  4. ACETYLSALICYLIC ACID [Concomitant]
     Active Substance: ASPIRIN
  5. GLIPIZIDE. [Concomitant]
     Active Substance: GLIPIZIDE
  6. CYANOCOBALAMIN. [Concomitant]
     Active Substance: CYANOCOBALAMIN
  7. IMBRUVICA [Concomitant]
     Active Substance: IBRUTINIB
     Indication: HAIRY CELL LEUKAEMIA
     Route: 048
  8. CARVEDILOL. [Concomitant]
     Active Substance: CARVEDILOL
  9. MELATONIN [Concomitant]
     Active Substance: MELATONIN
  10. MULTIVITAMINS [Concomitant]
     Active Substance: VITAMINS
  11. METFORMIN [Concomitant]
     Active Substance: METFORMIN HYDROCHLORIDE

REACTIONS (3)
  - Product use in unapproved indication [Unknown]
  - Localised infection [Unknown]
  - Off label use [Unknown]

NARRATIVE: CASE EVENT DATE: 2018
